FAERS Safety Report 16742986 (Version 3)
Quarter: 2019Q4

REPORT INFORMATION
  Report Type: Report from Study
  Country: None (occurrence: CO)
  Receive Date: 20190827
  Receipt Date: 20191101
  Transmission Date: 20200122
  Serious: Yes (Other)
  Sender: FDA-Public Use
  Company Number: CO-ABBVIE-19K-036-2902475-00

PATIENT
  Sex: Female
  Weight: 47 kg

DRUGS (2)
  1. ZEMPLAR [Suspect]
     Active Substance: PARICALCITOL
     Dosage: POST-DIALYSIS
     Route: 042
     Dates: start: 20191028
  2. ZEMPLAR [Suspect]
     Active Substance: PARICALCITOL
     Indication: HYPERPARATHYROIDISM
     Dosage: POST-DIALYSIS
     Route: 042
     Dates: start: 20150424, end: 20190726

REACTIONS (3)
  - Dysphonia [Recovering/Resolving]
  - Bronchitis chronic [Recovering/Resolving]
  - Blood parathyroid hormone increased [Recovering/Resolving]

NARRATIVE: CASE EVENT DATE: 2019
